FAERS Safety Report 17642359 (Version 1)
Quarter: 2020Q2

REPORT INFORMATION
  Report Type: Spontaneous
  Country: US (occurrence: US)
  Receive Date: 20200408
  Receipt Date: 20200408
  Transmission Date: 20200713
  Serious: Yes (Other)
  Sender: FDA-Public Use
  Company Number: US-ALLERGAN-1921222US

PATIENT
  Age: 28 Year
  Sex: Female
  Weight: 81.63 kg

DRUGS (2)
  1. LILETTA [Suspect]
     Active Substance: LEVONORGESTREL
     Indication: CONTRACEPTION
     Dosage: 52 MG, SINGLE
     Route: 015
     Dates: start: 20190422, end: 20190513
  2. IRON [Concomitant]
     Active Substance: IRON
     Indication: MINERAL SUPPLEMENTATION
     Dosage: UNK
     Route: 048

REACTIONS (3)
  - Medical device discomfort [Recovered/Resolved]
  - Device expulsion [Recovered/Resolved]
  - Uterine perforation [Recovered/Resolved]

NARRATIVE: CASE EVENT DATE: 20190513
